FAERS Safety Report 4783029-3 (Version None)
Quarter: 2005Q3

REPORT INFORMATION
  Report Type: 
  Country: None (occurrence: None)
  Receive Date: 20050928
  Receipt Date: 20050928
  Transmission Date: 20060218
  Serious: Yes (Hospitalization)
  Sender: FDA-Public Use
  Company Number: None

PATIENT
  Age: 53 Year
  Sex: Female
  Weight: 54.4316 kg

DRUGS (5)
  1. IMIPRAMINE [Suspect]
     Indication: DEPRESSION
     Dosage: 1 BY MOUTH THREE TIMES DAILY
     Dates: start: 20050530, end: 20050901
  2. IMIPRAMINE [Suspect]
     Indication: MIGRAINE PROPHYLAXIS
     Dosage: 1 BY MOUTH THREE TIMES DAILY
     Dates: start: 20050530, end: 20050901
  3. CARISOPRODOL [Concomitant]
  4. FIORINAL [Concomitant]
  5. KLONOPIN [Concomitant]

REACTIONS (3)
  - DRUG LEVEL DECREASED [None]
  - DRUG WITHDRAWAL SYNDROME [None]
  - INTRACRANIAL ANEURYSM [None]
